FAERS Safety Report 10023404 (Version 2)
Quarter: 2014Q2

REPORT INFORMATION
  Report Type: Spontaneous
  Country: FR (occurrence: FR)
  Receive Date: 20140320
  Receipt Date: 20140416
  Transmission Date: 20141212
  Serious: Yes (Hospitalization, Other)
  Sender: FDA-Public Use
  Company Number: FR-BRISTOL-MYERS SQUIBB COMPANY-20457396

PATIENT
  Age: 47 Year
  Sex: Female
  Weight: 54 kg

DRUGS (1)
  1. YERVOY [Suspect]
     Indication: MALIGNANT MELANOMA
     Dosage: 2ND INF: 7AUG13,3RD INF: 30AUG13, 4TH INF: 20SEP13
     Dates: start: 20130717

REACTIONS (4)
  - Colitis [Recovered/Resolved]
  - Pyrexia [Recovered/Resolved]
  - Haemorrhoids [Recovered/Resolved]
  - Pericarditis [Recovered/Resolved]
